FAERS Safety Report 14589913 (Version 2)
Quarter: 2018Q1

REPORT INFORMATION
  Report Type: Spontaneous
  Country: JP (occurrence: JP)
  Receive Date: 20180302
  Receipt Date: 20180314
  Transmission Date: 20180509
  Serious: Yes (Other)
  Sender: FDA-Public Use
  Company Number: JP-ROCHE-2081529

PATIENT
  Age: 72 Year
  Sex: Male

DRUGS (2)
  1. AFLIBERCEPT [Concomitant]
     Active Substance: AFLIBERCEPT
  2. LUCENTIS [Suspect]
     Active Substance: RANIBIZUMAB
     Indication: POLYPOIDAL CHOROIDAL VASCULOPATHY
     Route: 050

REACTIONS (1)
  - Macular hole [Recovered/Resolved]
